FAERS Safety Report 8002914-2 (Version None)
Quarter: 2011Q4

REPORT INFORMATION
  Report Type: 
  Country: None (occurrence: None)
  Receive Date: 20111222
  Receipt Date: 20110317
  Transmission Date: 20120403
  Serious: No
  Sender: FDA-Public Use
  Company Number: US-GLAXOSMITHKLINE-A0918669A

PATIENT
  Age: 68 Year
  Sex: Male

DRUGS (9)
  1. UROXATRAL [Concomitant]
  2. CENTRUM SILVER [Concomitant]
  3. VYTORIN [Concomitant]
  4. GLUCOSAMINE [Concomitant]
  5. VITAMIN B-12 [Concomitant]
  6. OMEPRAZOLE [Concomitant]
  7. LOSARTAN POTASSIUM [Concomitant]
  8. TESTOSTERONE [Concomitant]
  9. AVODART [Suspect]
     Indication: BENIGN PROSTATIC HYPERPLASIA
     Dosage: 1CAP PER DAY
     Route: 048
     Dates: start: 20110217

REACTIONS (3)
  - WEIGHT INCREASED [None]
  - BLOOD PRESSURE INCREASED [None]
  - HEADACHE [None]
